FAERS Safety Report 10086488 (Version 1)
Quarter: 2014Q2

REPORT INFORMATION
  Report Type: Spontaneous
  Country: US (occurrence: None)
  Receive Date: 20140417
  Receipt Date: 20140417
  Transmission Date: 20141212
  Serious: No
  Sender: FDA-Public Use
  Company Number: None

PATIENT
  Age: 26 Year
  Sex: Male
  Weight: 109.1 kg

DRUGS (1)
  1. AMITRIPTYLINE [Suspect]
     Indication: DEPRESSION
     Route: 048
     Dates: start: 20140106, end: 20140216

REACTIONS (2)
  - Gastrooesophageal reflux disease [None]
  - Diarrhoea [None]
